FAERS Safety Report 7237209 (Version 10)
Quarter: 2013Q1

REPORT INFORMATION
  Report Type: Report from Study
  Country: DE (occurrence: DE)
  Receive Date: 20100105
  Receipt Date: 20130204
  Transmission Date: 20140127
  Serious: Yes (Death, Hospitalization, Other)
  Sender: FDA-Public Use
  Company Number: PHHO2009DE15160

PATIENT
  Age: 66 Year
  Sex: Male
  Weight: 68 kg

DRUGS (7)
  1. EVEROLIMUS [Suspect]
     Indication: LIVER TRANSPLANT
     Dosage: 3.5 MG, BID
     Route: 048
     Dates: start: 20090925
  2. EVEROLIMUS [Suspect]
     Dosage: 5.5 MG, DAILY
     Route: 048
     Dates: end: 20100204
  3. TACROLIMUS [Suspect]
     Indication: LIVER TRANSPLANT
     Dosage: 8.5 MG, DAILY
     Route: 048
     Dates: start: 20090825, end: 20091215
  4. TACROLIMUS [Suspect]
     Dosage: 5 MG / DAY
     Route: 048
     Dates: start: 20091216, end: 20091221
  5. TACROLIMUS [Suspect]
     Dosage: 6 MG, DAILY
     Route: 048
     Dates: start: 20091222, end: 20100120
  6. TACROLIMUS [Suspect]
     Dosage: 7 MG / DAY
     Route: 048
     Dates: start: 20100121, end: 20100125
  7. AMPHOTERICIN [Concomitant]

REACTIONS (15)
  - Cholangitis [Fatal]
  - Pyrexia [Fatal]
  - Cholestasis [Fatal]
  - Sepsis [Fatal]
  - Metabolic encephalopathy [Fatal]
  - Herpes simplex pneumonia [Recovering/Resolving]
  - Enterococcal bacteraemia [Recovered/Resolved]
  - Pleural effusion [Recovering/Resolving]
  - Renal failure acute [Recovering/Resolving]
  - General physical health deterioration [Recovering/Resolving]
  - Concomitant disease progression [Recovering/Resolving]
  - Pancytopenia [Recovering/Resolving]
  - Pulmonary fibrosis [Recovering/Resolving]
  - Biliary ischaemia [Recovering/Resolving]
  - Renal impairment [Recovering/Resolving]
